FAERS Safety Report 4685770-X (Version None)
Quarter: 2005Q2

REPORT INFORMATION
  Report Type: 
  Country: None (occurrence: None)
  Receive Date: 20050607
  Receipt Date: 20050607
  Transmission Date: 20051028
  Serious: Yes (Other)
  Sender: FDA-Public Use
  Company Number: None

PATIENT
  Age: 33 Year
  Sex: Female
  Weight: 68.0396 kg

DRUGS (2)
  1. NORDETTE GENERIC [Suspect]
     Indication: CONTRACEPTION
     Dosage: ONE QD BY MOUTH
     Route: 048
     Dates: start: 20010601
  2. SEASONALE [Suspect]
     Indication: CONTRACEPTION
     Dosage: ONE QD BY MOUTH
     Route: 048
     Dates: start: 20041201

REACTIONS (1)
  - HAEMORRHAGE [None]
